FAERS Safety Report 5668706-4 (Version None)
Quarter: 2008Q1

REPORT INFORMATION
  Report Type: 
  Country: None (occurrence: None)
  Receive Date: 20080317
  Receipt Date: 20080313
  Transmission Date: 20080703
  Serious: Yes (Other)
  Sender: FDA-Public Use
  Company Number: AU-RANBAXY-2008R3-13689

PATIENT

DRUGS (1)
  1. FLUCONAZOLE [Suspect]
     Indication: CANDIDIASIS
     Dosage: 150 MG, SINGLE
     Route: 048
     Dates: start: 20080302, end: 20080302

REACTIONS (3)
  - DERMATITIS BULLOUS [None]
  - DYSPNOEA [None]
  - PRURITUS [None]
